FAERS Safety Report 7157514-3 (Version None)
Quarter: 2010Q4

REPORT INFORMATION
  Report Type: 
  Country: None (occurrence: None)
  Receive Date: 20101214
  Receipt Date: 20100412
  Transmission Date: 20110411
  Serious: No
  Sender: FDA-Public Use
  Company Number: US-ASTRAZENECA-2010SE06935

PATIENT
  Age: 63 Year
  Sex: Male
  Weight: 127 kg

DRUGS (4)
  1. CRESTOR [Suspect]
     Indication: BLOOD CHOLESTEROL INCREASED
     Route: 048
     Dates: start: 20100209
  2. ASPIRIN [Concomitant]
  3. LISINOPRIL [Concomitant]
  4. NIACIN [Concomitant]

REACTIONS (5)
  - ASTHENIA [None]
  - EPISTAXIS [None]
  - MYALGIA [None]
  - NASAL DRYNESS [None]
  - PAIN IN EXTREMITY [None]
